FAERS Safety Report 4363355-2 (Version None)
Quarter: 2004Q2

REPORT INFORMATION
  Report Type: 
  Country: None (occurrence: None)
  Receive Date: 20040518
  Receipt Date: 20040503
  Transmission Date: 20050107
  Serious: Yes (Other)
  Sender: FDA-Public Use
  Company Number: 2004211502BE

PATIENT
  Age: 74 Year
  Sex: Female

DRUGS (5)
  1. AROMASIN [Suspect]
     Indication: BREAST CANCER
     Dates: start: 20040101, end: 20040401
  2. RADIATION [Concomitant]
  3. ANTIBIOTICS [Concomitant]
  4. AMLODIPINE BESYLATE [Concomitant]
  5. PARIET (RABEPRAZOLE SODIUM) [Concomitant]

REACTIONS (8)
  - BLOOD DISORDER [None]
  - EAR INFECTION [None]
  - HAEMATOTOXICITY [None]
  - NEUTROPENIA [None]
  - PHARYNGITIS [None]
  - PYREXIA [None]
  - RHINITIS [None]
  - UPPER RESPIRATORY TRACT INFECTION [None]
